FAERS Safety Report 4760946-1 (Version None)
Quarter: 2005Q3

REPORT INFORMATION
  Report Type: 
  Country: None (occurrence: None)
  Receive Date: 20050901
  Receipt Date: 20050822
  Transmission Date: 20060218
  Serious: Yes (Hospitalization, Other)
  Sender: FDA-Public Use
  Company Number: S05-USA-02638-01

PATIENT
  Age: 62 Year
  Sex: Female

DRUGS (4)
  1. THYROLAR-2 [Suspect]
     Indication: HYPOTHYROIDISM
     Dosage: 1 TABLET QD PO
     Route: 048
     Dates: start: 20050301, end: 20050505
  2. THYROLAR-1 [Suspect]
     Indication: HYPOTHYROIDISM
     Dosage: 1.5 TABLET QD PO
     Route: 048
     Dates: start: 20050506
  3. ATENOLOL [Concomitant]
  4. FLEXERIL [Concomitant]

REACTIONS (6)
  - BACK PAIN [None]
  - CHEST PAIN [None]
  - CONDITION AGGRAVATED [None]
  - HYPERTENSION [None]
  - HYPERTHYROIDISM [None]
  - SHOULDER PAIN [None]
